FAERS Safety Report 10224812 (Version 2)
Quarter: 2014Q2

REPORT INFORMATION
  Report Type: Report from Study
  Country: US (occurrence: US)
  Receive Date: 20140609
  Receipt Date: 20140624
  Transmission Date: 20141212
  Serious: Yes (Hospitalization)
  Sender: FDA-Public Use
  Company Number: US-GLAXOSMITHKLINE-A1069882B

PATIENT
  Age: 44 Year
  Sex: Female
  Weight: 85.6 kg

DRUGS (3)
  1. PAZOPANIB [Suspect]
     Indication: LEIOMYOSARCOMA
     Dosage: 800NG TWICE PER DAY
     Route: 048
     Dates: start: 20140416
  2. TRAMETINIB [Suspect]
     Indication: LEIOMYOSARCOMA
     Dosage: 2MG PER DAY
     Route: 048
     Dates: start: 20140409
  3. KEPPRA [Concomitant]
     Indication: CONVULSION
     Dates: start: 201404

REACTIONS (1)
  - Convulsion [Not Recovered/Not Resolved]
